FAERS Safety Report 10152057 (Version 1)
Quarter: 2014Q2

REPORT INFORMATION
  Report Type: Spontaneous
  Country: FR (occurrence: None)
  Receive Date: 20140501
  Receipt Date: 20140501
  Transmission Date: 20141212
  Serious: Yes (Life-Threatening)
  Sender: FDA-Public Use
  Company Number: FK201401489

PATIENT
  Age: 35 Year
  Sex: Female

DRUGS (3)
  1. PROPOFOL [Suspect]
     Indication: INDUCTION OF ANAESTHESIA
     Dosage: 1 IN 1 D; NOT OTHERWISE SPECIFIED
     Route: 042
     Dates: start: 20140220, end: 20140220
  2. ESMERON [Suspect]
     Indication: INDUCTION OF ANAESTHESIA
     Dosage: 1 IN 1 D; NOT OTHERWISE SPECIFIED
     Route: 042
     Dates: start: 20140220, end: 20140220
  3. SUFENTANIL [Suspect]
     Indication: INDUCTION OF ANAESTHESIA
     Dosage: NOT OTHERWISE SPECIFIED
     Route: 042
     Dates: start: 20140220, end: 20140220

REACTIONS (1)
  - Anaphylactic shock [None]
